FAERS Safety Report 4679934-9 (Version None)
Quarter: 2005Q2

REPORT INFORMATION
  Report Type: 
  Country: None (occurrence: None)
  Receive Date: 20050602
  Receipt Date: 20050509
  Transmission Date: 20051028
  Serious: Yes (Hospitalization)
  Sender: FDA-Public Use
  Company Number: PHNU2005DE01912

PATIENT
  Age: 33 Year
  Sex: Female

DRUGS (3)
  1. CLOZAPINE [Suspect]
     Indication: SCHIZOPHRENIA
     Dosage: 75 MG, TID
     Route: 048
  2. ORFIRIL [Concomitant]
     Dosage: 450 MG, QD
     Route: 048
     Dates: start: 20050421
  3. LORAZEPAM [Concomitant]
     Dosage: 1 MG, QD
     Route: 048
     Dates: start: 20050421

REACTIONS (3)
  - EXANTHEM [None]
  - PYREXIA [None]
  - VARICELLA [None]
